FAERS Safety Report 25770368 (Version 1)
Quarter: 2025Q3

REPORT INFORMATION
  Report Type: Spontaneous
  Country: GB (occurrence: GB)
  Receive Date: 20250908
  Receipt Date: 20250908
  Transmission Date: 20251021
  Serious: Yes (Other)
  Sender: ORGANON
  Company Number: None

PATIENT
  Age: 29 Year
  Sex: Female

DRUGS (2)
  1. MIRTAZAPINE [Suspect]
     Active Substance: MIRTAZAPINE
     Indication: Poor quality sleep
     Dates: start: 20250829
  2. PROPRANOLOL [Concomitant]
     Active Substance: PROPRANOLOL HYDROCHLORIDE
     Indication: Panic attack
     Dates: start: 20250822

REACTIONS (6)
  - Disorientation [Not Recovered/Not Resolved]
  - Disturbance in attention [Unknown]
  - Dizziness [Unknown]
  - Fatigue [Unknown]
  - Abnormal dreams [Unknown]
  - Product use in unapproved indication [Unknown]

NARRATIVE: CASE EVENT DATE: 20250829
